FAERS Safety Report 7077028-9 (Version None)
Quarter: 2010Q4

REPORT INFORMATION
  Report Type: 
  Country: None (occurrence: None)
  Receive Date: 20101101
  Receipt Date: 20101021
  Transmission Date: 20110411
  Serious: Yes (Hospitalization)
  Sender: FDA-Public Use
  Company Number: JP-ROCHE-725515

PATIENT
  Sex: Female
  Weight: 45.4 kg

DRUGS (11)
  1. BEVACIZUMAB [Suspect]
     Indication: GLIOBLASTOMA
     Dosage: DOSAGE FOR: INFUSION
     Route: 042
     Dates: start: 20100624
  2. BEVACIZUMAB [Suspect]
     Route: 042
  3. BEVACIZUMAB [Suspect]
     Dosage: LAST DOSE PRIOR TO SAE ON 05 AUGUST 2010. DRUG PERMANENTLY DISCONTINUED
     Route: 042
     Dates: end: 20100805
  4. TEMOZOLOMIDE [Suspect]
     Indication: GLIOBLASTOMA
     Route: 048
     Dates: start: 20100624
  5. TEMOZOLOMIDE [Suspect]
     Route: 048
  6. TEMOZOLOMIDE [Suspect]
     Dosage: LAST DOSE PRIOR TO SAE ON 05 AUGUST 2010. DRUG PERMANENTLY DISCONTINUED
     Route: 048
     Dates: end: 20100805
  7. SULFAMETHOXAZOLE [Suspect]
     Route: 065
     Dates: start: 20100624, end: 20100830
  8. ETIZOLAM [Suspect]
     Route: 065
     Dates: start: 20100611
  9. BROTIZOLAM [Suspect]
     Route: 065
     Dates: start: 20100614
  10. MAGNESIUM OXIDE [Suspect]
     Route: 065
     Dates: start: 20100627
  11. TROPISETRON HYDROCHLORIDE [Suspect]
     Route: 065

REACTIONS (4)
  - CYTOMEGALOVIRUS INFECTION [None]
  - EOSINOPHILIA [None]
  - HYPOALBUMINAEMIA [None]
  - PLEURAL EFFUSION [None]
